FAERS Safety Report 7713728-2 (Version None)
Quarter: 2011Q3

REPORT INFORMATION
  Report Type: 
  Country: None (occurrence: None)
  Receive Date: 20110826
  Receipt Date: 20110822
  Transmission Date: 20111222
  Serious: Yes (Death, Hospitalization, Other)
  Sender: FDA-Public Use
  Company Number: GB-ABBOTT-11P-167-0713502-00

PATIENT
  Sex: Male
  Weight: 85 kg

DRUGS (7)
  1. RANITIDINE [Concomitant]
     Indication: PROPHYLAXIS AGAINST GASTROINTESTINAL ULCER
     Route: 048
  2. SIMAVASTATIN [Concomitant]
     Indication: HYPERLIPIDAEMIA
     Route: 048
  3. PREDNISOLONE [Concomitant]
     Indication: RHEUMATOID ARTHRITIS
  4. RAMIPRIL [Concomitant]
     Indication: HYPERTENSION
     Route: 048
  5. ACETAMINOPHEN AND CODEINE PHOSPHATE [Concomitant]
     Indication: PRODUCT USED FOR UNKNOWN INDICATION
  6. HUMIRA [Suspect]
     Indication: RHEUMATOID ARTHRITIS
     Route: 058
     Dates: start: 20080902, end: 20110209
  7. NITROFURANTOIN [Concomitant]
     Indication: URINARY TRACT INFECTION
     Route: 048

REACTIONS (8)
  - RHEUMATOID ARTHRITIS [None]
  - UROSEPSIS [None]
  - CARDIAC ARREST [None]
  - PYREXIA [None]
  - URINARY TRACT INFECTION [None]
  - RENAL IMPAIRMENT [None]
  - MULTI-ORGAN FAILURE [None]
  - NEUTROPHILIA [None]
